FAERS Safety Report 21651995 (Version 1)
Quarter: 2022Q4

REPORT INFORMATION
  Report Type: Spontaneous
  Country: US (occurrence: None)
  Receive Date: 20221125
  Receipt Date: 20221125
  Transmission Date: 20230112
  Serious: Yes (Other)
  Sender: FDA-Public Use
  Company Number: None

PATIENT
  Age: 52 Year
  Sex: Female
  Weight: 62.55 kg

DRUGS (20)
  1. RISPERIDONE [Suspect]
     Active Substance: RISPERIDONE
     Indication: Schizoaffective disorder
     Dosage: FREQUENCY : AT BEDTIME;?
     Route: 048
     Dates: start: 20131028
  2. RISPERIDONE [Concomitant]
     Active Substance: RISPERIDONE
  3. NOVOLOG [Concomitant]
     Active Substance: INSULIN ASPART
  4. UNSPECIFIED INGREDIENT [Concomitant]
     Active Substance: UNSPECIFIED INGREDIENT
  5. Techlite Pen Needle [Concomitant]
  6. True Metrix Test Strip [Concomitant]
  7. FARXIGA [Concomitant]
     Active Substance: DAPAGLIFLOZIN PROPANEDIOL
  8. METFORMIN [Concomitant]
     Active Substance: METFORMIN HYDROCHLORIDE
  9. DEVICE [Concomitant]
     Active Substance: DEVICE
  10. FERROUS GLUCONATE [Concomitant]
     Active Substance: FERROUS GLUCONATE
  11. VITAMIN C [Concomitant]
     Active Substance: ASCORBIC ACID
  12. VITAMIN D3 [Concomitant]
     Active Substance: CHOLECALCIFEROL
  13. COENZYME Q10 [Concomitant]
     Active Substance: DIETARY SUPPLEMENT\UBIDECARENONE
  14. MAGNESIUM [Concomitant]
     Active Substance: MAGNESIUM
  15. Zinc gummies [Concomitant]
  16. UNSPECIFIED INGREDIENT [Concomitant]
     Active Substance: UNSPECIFIED INGREDIENT
  17. ProDentim [Concomitant]
  18. IQ Brain Blitz [Concomitant]
  19. LACTOBACILLUS ACIDOPHILUS [Concomitant]
     Active Substance: LACTOBACILLUS ACIDOPHILUS
  20. Nascent Iodine [Concomitant]

REACTIONS (4)
  - Somnolence [None]
  - Fatigue [None]
  - Suicide attempt [None]
  - Impaired work ability [None]

NARRATIVE: CASE EVENT DATE: 20221020
